FAERS Safety Report 8203402 (Version 6)
Quarter: 2013Q1

REPORT INFORMATION
  Report Type: Report from Study
  Country: CA (occurrence: CA)
  Receive Date: 20111027
  Receipt Date: 20130322
  Transmission Date: 20140127
  Serious: Yes (Other)
  Sender: FDA-Public Use
  Company Number: CA-ROCHE-1005605

PATIENT
  Age: 38 None
  Sex: Female
  Weight: 73 kg

DRUGS (13)
  1. ACTEMRA [Suspect]
     Indication: RHEUMATOID ARTHRITIS
     Route: 042
     Dates: start: 20110315
  2. ACTEMRA [Suspect]
     Dosage: LAST DOSE OF ADMINISTRATION: 10/AUG/2012
     Route: 042
     Dates: start: 20120615
  3. SYNTHROID [Concomitant]
     Indication: THYROID DISORDER
     Route: 048
  4. MINOCYCLINE [Concomitant]
     Indication: UNEVALUABLE EVENT
     Route: 048
  5. ZOPICLONE [Concomitant]
     Indication: SLEEP DISORDER
     Route: 048
  6. LORAZEPAM [Concomitant]
     Route: 048
  7. VOLTAREN [Concomitant]
     Indication: RHEUMATOID ARTHRITIS
     Route: 048
  8. MORPHINE [Concomitant]
     Indication: PAIN
     Route: 048
  9. PREDNISONE [Concomitant]
     Indication: RHEUMATOID ARTHRITIS
     Route: 048
  10. ADVAIR [Concomitant]
     Route: 055
  11. VITAMIN B12 [Concomitant]
     Route: 058
  12. ECHINACEA [Concomitant]
     Route: 065
  13. VITAMIN C [Concomitant]
     Route: 065

REACTIONS (12)
  - Cholecystectomy [Recovered/Resolved]
  - Platelet count decreased [Not Recovered/Not Resolved]
  - Contusion [Not Recovered/Not Resolved]
  - Hiatus hernia [Unknown]
  - Gastrooesophageal reflux disease [Unknown]
  - Injection site bruising [Recovering/Resolving]
  - Dizziness [Recovered/Resolved]
  - Nausea [Recovered/Resolved]
  - Sensory loss [Recovered/Resolved]
  - Vomiting [Recovered/Resolved]
  - Shock [Recovered/Resolved]
  - Bronchitis [Not Recovered/Not Resolved]
